FAERS Safety Report 9193254 (Version 2)
Quarter: 2013Q2

REPORT INFORMATION
  Report Type: Spontaneous
  Country: US (occurrence: None)
  Receive Date: 20120703
  Receipt Date: 20130107
  Transmission Date: 20140414
  Serious: Yes (Other)
  Sender: FDA-Public Use
  Company Number: PHEH2012US005038

PATIENT
  Age: 57 Year
  Sex: Female
  Weight: 53.1 kg

DRUGS (1)
  1. GILENYA [Suspect]
     Indication: MULTIPLE SCLEROSIS
     Route: 048
     Dates: start: 201108

REACTIONS (6)
  - Confusional state [None]
  - Anxiety [None]
  - Multiple sclerosis relapse [None]
  - Hypoaesthesia [None]
  - Gait disturbance [None]
  - Back pain [None]
